FAERS Safety Report 13518270 (Version 5)
Quarter: 2018Q2

REPORT INFORMATION
  Report Type: Report from Study
  Country: US (occurrence: US)
  Receive Date: 20170505
  Receipt Date: 20180629
  Transmission Date: 20180711
  Serious: No
  Sender: FDA-Public Use
  Company Number: PHHY2015US070849

PATIENT
  Age: 61 Year
  Sex: Female

DRUGS (6)
  1. FLONASE [Concomitant]
     Active Substance: FLUTICASONE PROPIONATE
     Indication: HYPERSENSITIVITY
     Dosage: UNK
     Route: 065
     Dates: start: 20150303, end: 20170913
  2. CARBAMAZEPINE. [Concomitant]
     Active Substance: CARBAMAZEPINE
     Indication: NEURALGIA
     Dosage: UNK
     Route: 065
     Dates: start: 20170515
  3. HCTZ [Concomitant]
     Active Substance: HYDROCHLOROTHIAZIDE
     Indication: HYPERTENSION
     Dosage: UNK
     Route: 065
     Dates: start: 20150908
  4. LIPITOR [Concomitant]
     Active Substance: ATORVASTATIN CALCIUM
     Indication: BLOOD CHOLESTEROL INCREASED
     Dosage: UNK
     Route: 065
     Dates: start: 20150908, end: 20160927
  5. GILENYA [Suspect]
     Active Substance: FINGOLIMOD HYDROCHLORIDE
     Indication: MULTIPLE SCLEROSIS
     Dosage: QD
     Route: 048
  6. CRESTOR [Concomitant]
     Active Substance: ROSUVASTATIN CALCIUM
     Indication: BLOOD CHOLESTEROL INCREASED
     Dosage: UNK
     Route: 065
     Dates: start: 20160927, end: 20170913

REACTIONS (19)
  - Alanine aminotransferase increased [Unknown]
  - High density lipoprotein decreased [Unknown]
  - Dizziness [Unknown]
  - Oropharyngeal pain [Unknown]
  - Feeling abnormal [Unknown]
  - Food poisoning [Recovered/Resolved]
  - Headache [Recovered/Resolved]
  - Abdominal pain [Unknown]
  - Muscle spasticity [Unknown]
  - Cataract [Unknown]
  - Cognitive disorder [Unknown]
  - Muscular weakness [Unknown]
  - Alopecia [Unknown]
  - Blood alkaline phosphatase increased [Unknown]
  - Tremor [Unknown]
  - Ear pain [Unknown]
  - Uhthoff^s phenomenon [Unknown]
  - Aspartate aminotransferase increased [Unknown]
  - Facial pain [Unknown]

NARRATIVE: CASE EVENT DATE: 20150225
